FAERS Safety Report 10191741 (Version 1)
Quarter: 2014Q2

REPORT INFORMATION
  Report Type: Spontaneous
  Country: US (occurrence: None)
  Receive Date: 20140522
  Receipt Date: 20140522
  Transmission Date: 20141212
  Serious: Yes (Disabling)
  Sender: FDA-Public Use
  Company Number: None

PATIENT
  Age: 49 Year
  Sex: Male
  Weight: 77.11 kg

DRUGS (2)
  1. ENBREL [Suspect]
  2. ENBREL [Concomitant]

REACTIONS (3)
  - Vertigo [None]
  - Diplopia [None]
  - Demyelination [None]
